FAERS Safety Report 5743260-7 (Version None)
Quarter: 2008Q2

REPORT INFORMATION
  Report Type: 
  Country: None (occurrence: None)
  Receive Date: 20080519
  Receipt Date: 20080507
  Transmission Date: 20081010
  Serious: Yes (Hospitalization)
  Sender: FDA-Public Use
  Company Number: FR-PFIZER INC-2005164003

PATIENT
  Sex: Male
  Weight: 72 kg

DRUGS (6)
  1. SU-011,248 [Suspect]
     Indication: RENAL CELL CARCINOMA
     Route: 048
  2. IRON [Concomitant]
     Route: 048
     Dates: start: 20050801, end: 20051104
  3. FUROSEMIDE [Concomitant]
     Route: 048
     Dates: start: 20050901, end: 20051125
  4. OMEPRAZOLE [Concomitant]
     Route: 048
  5. ALGINIC ACID [Concomitant]
     Route: 048
  6. AVLOCARDYL [Concomitant]
     Route: 048

REACTIONS (2)
  - PROTEINURIA [None]
  - THROMBOCYTOPENIA [None]
